FAERS Safety Report 22110898 (Version 2)
Quarter: 2023Q2

REPORT INFORMATION
  Report Type: Spontaneous
  Country: US (occurrence: US)
  Receive Date: 20230317
  Receipt Date: 20230503
  Transmission Date: 20230721
  Serious: No
  Sender: FDA-Public Use
  Company Number: US-PFIZER INC-202300112710

PATIENT
  Age: 61 Year
  Sex: Female
  Weight: 70.295 kg

DRUGS (5)
  1. PAXLOVID [Suspect]
     Active Substance: NIRMATRELVIR\RITONAVIR
     Indication: COVID-19 treatment
     Dosage: [PF-07321332 300 MG]/[RITONAVIR 100 MG]; 2X/DAY
     Dates: start: 20230111, end: 20230112
  2. SYNTHROID [Concomitant]
     Active Substance: LEVOTHYROXINE SODIUM
     Dosage: UNK
     Dates: start: 20140603
  3. SYNTHROID [Concomitant]
     Active Substance: LEVOTHYROXINE SODIUM
     Dosage: UNK
     Dates: start: 2000
  4. TIZANIDINE [Concomitant]
     Active Substance: TIZANIDINE
     Dosage: UNK
     Dates: start: 201605
  5. MUCINEX [Concomitant]
     Active Substance: GUAIFENESIN
     Dosage: UNK
     Dates: start: 20230110, end: 20230124

REACTIONS (6)
  - Oropharyngeal pain [Recovered/Resolved]
  - Oesophageal pain [Recovered/Resolved]
  - Dyspepsia [Recovered/Resolved]
  - Abdominal pain upper [Recovered/Resolved]
  - Diarrhoea [Recovered/Resolved]
  - Dyspepsia [Unknown]

NARRATIVE: CASE EVENT DATE: 20230101
